FAERS Safety Report 5548866-6 (Version None)
Quarter: 2007Q4

REPORT INFORMATION
  Report Type: 
  Country: None (occurrence: None)
  Receive Date: 20071211
  Receipt Date: 20070329
  Transmission Date: 20080405
  Serious: No
  Sender: FDA-Public Use
  Company Number: US-AMGEN-KDL215132

PATIENT
  Sex: Female
  Weight: 79.5 kg

DRUGS (10)
  1. ENBREL [Suspect]
     Indication: PSORIATIC ARTHROPATHY
     Route: 058
     Dates: start: 20060116
  2. AZULFIDINE EN-TABS [Concomitant]
  3. SYNTHROID [Concomitant]
  4. VITAMIN B-12 [Concomitant]
  5. AMBIEN [Concomitant]
  6. DARVOCET [Concomitant]
  7. VALTREX [Concomitant]
  8. RELAFEN [Concomitant]
  9. ULTRAM [Concomitant]
  10. FOLIC ACID [Concomitant]

REACTIONS (2)
  - HERPES ZOSTER [None]
  - VISION BLURRED [None]
